FAERS Safety Report 19782122 (Version 3)
Quarter: 2021Q3

REPORT INFORMATION
  Report Type: Report from Study
  Country: US (occurrence: US)
  Receive Date: 20210902
  Receipt Date: 20210914
  Transmission Date: 20211014
  Serious: Yes (Hospitalization)
  Sender: FDA-Public Use
  Company Number: US-CELGENEUS-USA-20210808315

PATIENT
  Age: 37 Year
  Sex: Female

DRUGS (23)
  1. OZANIMOD. [Suspect]
     Active Substance: OZANIMOD
     Route: 048
     Dates: start: 20190731, end: 20190828
  2. OZANIMOD. [Suspect]
     Active Substance: OZANIMOD
     Route: 048
     Dates: start: 20191002, end: 20191113
  3. OZANIMOD. [Suspect]
     Active Substance: OZANIMOD
     Route: 048
     Dates: start: 20191113, end: 20191223
  4. OZANIMOD. [Suspect]
     Active Substance: OZANIMOD
     Route: 048
     Dates: start: 20200617, end: 20201001
  5. FAMOTIDINE. [Concomitant]
     Active Substance: FAMOTIDINE
     Indication: GASTRITIS PROPHYLAXIS
     Dosage: 20 MILLIGRAM
     Route: 048
     Dates: start: 20210824
  6. HYDRALAZINE [Concomitant]
     Active Substance: HYDRALAZINE HYDROCHLORIDE
     Indication: HYPERTENSION
     Dosage: 10 MILLIGRAM
     Route: 048
     Dates: start: 20210824
  7. OZANIMOD. [Suspect]
     Active Substance: OZANIMOD
     Indication: COLITIS ULCERATIVE
     Route: 048
     Dates: start: 20180711
  8. OZANIMOD. [Suspect]
     Active Substance: OZANIMOD
     Route: 048
     Dates: start: 20180924, end: 20181119
  9. OZANIMOD. [Suspect]
     Active Substance: OZANIMOD
     Route: 048
     Dates: start: 20190828, end: 20191002
  10. OZANIMOD. [Suspect]
     Active Substance: OZANIMOD
     Route: 048
     Dates: start: 20210310, end: 20210520
  11. OZANIMOD. [Suspect]
     Active Substance: OZANIMOD
     Route: 048
     Dates: start: 20210815
  12. APRISO [Concomitant]
     Active Substance: MESALAMINE
     Indication: COLITIS ULCERATIVE
     Dosage: 1.5 GRAM
     Route: 048
     Dates: start: 20180516
  13. OZANIMOD. [Suspect]
     Active Substance: OZANIMOD
     Route: 048
     Dates: start: 20201001, end: 20201216
  14. OZANIMOD. [Suspect]
     Active Substance: OZANIMOD
     Route: 048
     Dates: start: 20180815, end: 20180924
  15. OZANIMOD. [Suspect]
     Active Substance: OZANIMOD
     Route: 048
     Dates: start: 20181119, end: 20190130
  16. OZANIMOD. [Suspect]
     Active Substance: OZANIMOD
     Route: 048
     Dates: start: 20201216, end: 20210310
  17. POTASSIUM CHLORIDE. [Concomitant]
     Active Substance: POTASSIUM CHLORIDE
     Indication: HYPOKALAEMIA
     Dosage: 20 MEQ
     Route: 048
     Dates: start: 20210823
  18. THIAMINE. [Concomitant]
     Active Substance: THIAMINE
     Indication: PROPHYLAXIS
     Dosage: 200 MILLIGRAM
     Route: 048
     Dates: start: 20210824
  19. OZANIMOD. [Suspect]
     Active Substance: OZANIMOD
     Route: 048
     Dates: start: 20190130, end: 20190424
  20. OZANIMOD. [Suspect]
     Active Substance: OZANIMOD
     Route: 048
     Dates: start: 20191223, end: 20200318
  21. ACETAMINOPHEN. [Concomitant]
     Active Substance: ACETAMINOPHEN
     Indication: PAIN
     Dosage: 1000 MILLIGRAM
     Route: 048
     Dates: start: 20210823
  22. OZANIMOD. [Suspect]
     Active Substance: OZANIMOD
     Route: 048
     Dates: start: 20200318
  23. PREDNISONE. [Concomitant]
     Active Substance: PREDNISONE
     Indication: COLITIS ULCERATIVE
     Dosage: 15 MILLIGRAM
     Route: 048
     Dates: start: 20190806

REACTIONS (1)
  - Transient ischaemic attack [Not Recovered/Not Resolved]

NARRATIVE: CASE EVENT DATE: 20210823
